FAERS Safety Report 26186471 (Version 1)
Quarter: 2025Q4

REPORT INFORMATION
  Report Type: Spontaneous
  Country: US (occurrence: None)
  Receive Date: 20251219
  Receipt Date: 20251219
  Transmission Date: 20260118
  Serious: Yes (Hospitalization)
  Sender: FDA-CTU
  Company Number: None

PATIENT
  Age: 53 Year
  Sex: Male
  Weight: 110 kg

DRUGS (1)
  1. TIRZEPATIDE [Suspect]
     Active Substance: TIRZEPATIDE
     Indication: Weight decreased
     Dosage: 10MG QWEEK SQ
     Route: 058
     Dates: start: 20241216, end: 20250606

REACTIONS (6)
  - Acute kidney injury [None]
  - Nausea [None]
  - Vomiting [None]
  - Dehydration [None]
  - Tachycardia [None]
  - Oesophagitis [None]

NARRATIVE: CASE EVENT DATE: 20250606
